FAERS Safety Report 4745454-6 (Version None)
Quarter: 2005Q3

REPORT INFORMATION
  Report Type: 
  Country: None (occurrence: None)
  Receive Date: 20050811
  Receipt Date: 20040908
  Transmission Date: 20060218
  Serious: Yes (Hospitalization, Other)
  Sender: FDA-Public Use
  Company Number: USA040977715

PATIENT
  Age: 80 Year
  Sex: Female
  Weight: 57 kg

DRUGS (3)
  1. HUMALOG [Suspect]
     Indication: DIABETES MELLITUS
  2. INSULIN [Suspect]
     Indication: DIABETES MELLITUS
     Dates: start: 19640101
  3. LANTUS [Concomitant]

REACTIONS (4)
  - FATIGUE [None]
  - HEARING IMPAIRED [None]
  - MOBILITY DECREASED [None]
  - OVARIAN CANCER [None]
